FAERS Safety Report 4691917-1 (Version None)
Quarter: 2005Q2

REPORT INFORMATION
  Report Type: 
  Country: None (occurrence: None)
  Receive Date: 20050614
  Receipt Date: 20050614
  Transmission Date: 20051028
  Serious: Yes (Disabling)
  Sender: FDA-Public Use
  Company Number: None

PATIENT
  Age: 42 Year
  Sex: Female
  Weight: 54.4316 kg

DRUGS (1)
  1. ZYPREXA [Suspect]
     Indication: POST-TRAUMATIC STRESS DISORDER
     Dosage: 0.25 MGS -} I ACTUALLY CUT UP TABLETS

REACTIONS (6)
  - DEMENTIA [None]
  - FEELING ABNORMAL [None]
  - HALLUCINATION [None]
  - IMPAIRED DRIVING ABILITY [None]
  - MOVEMENT DISORDER [None]
  - POSTURE ABNORMAL [None]
